FAERS Safety Report 10909818 (Version 1)
Quarter: 2015Q1

REPORT INFORMATION
  Report Type: Spontaneous
  Country: US (occurrence: US)
  Receive Date: 20150312
  Receipt Date: 20150312
  Transmission Date: 20150721
  Serious: No
  Sender: FDA-Public Use
  Company Number: US-SA-2014SA073922

PATIENT
  Age: 71 Year
  Sex: Female

DRUGS (1)
  1. NASACORT ALLERGY 24HR [Suspect]
     Active Substance: TRIAMCINOLONE ACETONIDE
     Indication: UPPER-AIRWAY COUGH SYNDROME
     Dosage: DOSE - 2 SPRAYS/NOSTRIL?THERAPY START DATE - 1WEEK AGO
     Route: 065
     Dates: start: 201405

REACTIONS (2)
  - Eye pain [Unknown]
  - Dry eye [Unknown]
